FAERS Safety Report 16959649 (Version 1)
Quarter: 2019Q4

REPORT INFORMATION
  Report Type: Spontaneous
  Country: IT (occurrence: IT)
  Receive Date: 20191025
  Receipt Date: 20191025
  Transmission Date: 20200122
  Serious: Yes (Other)
  Sender: FDA-Public Use
  Company Number: IT-HIKMA PHARMACEUTICALS USA INC.-IT-H14001-19-49507

PATIENT
  Age: 67 Year
  Sex: Female

DRUGS (4)
  1. DOXIFLURIDINE [Suspect]
     Active Substance: DOXIFLURIDINE
     Indication: NEOPLASM RECURRENCE
     Dosage: CYCLICAL
     Route: 042
     Dates: start: 20190508, end: 20190911
  2. IRINOTECAN [Suspect]
     Active Substance: IRINOTECAN
     Indication: NEOPLASM RECURRENCE
     Route: 042
     Dates: start: 20190508, end: 20190911
  3. FLUOROURACIL. [Suspect]
     Active Substance: FLUOROURACIL
     Indication: NEOPLASM RECURRENCE
     Dosage: CYCLICAL
     Route: 040
     Dates: start: 20190508, end: 20190911
  4. PANITUMUMAB [Suspect]
     Active Substance: PANITUMUMAB
     Indication: NEOPLASM RECURRENCE
     Dosage: CYCLICAL
     Route: 042
     Dates: start: 20190508, end: 20190911

REACTIONS (5)
  - Skin reaction [Recovered/Resolved]
  - Lacrimation increased [Recovered/Resolved]
  - Hypertransaminasaemia [Recovered/Resolved]
  - Pruritus [Recovered/Resolved]
  - Skin fissures [Recovered/Resolved]

NARRATIVE: CASE EVENT DATE: 20190731
